FAERS Safety Report 5829421-7 (Version None)
Quarter: 2008Q3

REPORT INFORMATION
  Report Type: 
  Country: None (occurrence: None)
  Receive Date: 20080729
  Receipt Date: 20080714
  Transmission Date: 20090109
  Serious: Yes (Hospitalization)
  Sender: FDA-Public Use
  Company Number: 2008AL003030

PATIENT
  Age: 59 Year
  Sex: Female
  Weight: 53.5244 kg

DRUGS (13)
  1. DIGOXIN [Suspect]
     Indication: CARDIAC FAILURE CONGESTIVE
  2. ASPIRIN [Concomitant]
  3. NITROSTAT [Concomitant]
  4. LASIX [Concomitant]
  5. PLAVIX [Concomitant]
  6. CLONIDINE [Concomitant]
  7. POTASSIUM CHLORIDE [Concomitant]
  8. XANAX [Concomitant]
  9. HYDROCODONE BITARTRATE [Concomitant]
  10. ACETAMINOPHEN [Concomitant]
  11. VYTORIN [Concomitant]
  12. IMDUR [Concomitant]
  13. EXFORGE [Concomitant]

REACTIONS (10)
  - ASTHENIA [None]
  - ATRIOVENTRICULAR BLOCK SECOND DEGREE [None]
  - CARDIOACTIVE DRUG LEVEL ABOVE THERAPEUTIC [None]
  - CHEST PAIN [None]
  - DIZZINESS [None]
  - DYSPNOEA [None]
  - OEDEMA [None]
  - PALPITATIONS [None]
  - STOMACH DISCOMFORT [None]
  - THERAPEUTIC AGENT TOXICITY [None]
